FAERS Safety Report 22221974 (Version 1)
Quarter: 2023Q2

REPORT INFORMATION
  Report Type: Other
  Country: US (occurrence: US)
  Receive Date: 20230418
  Receipt Date: 20230418
  Transmission Date: 20230722
  Serious: Yes (Other)
  Sender: FDA-Public Use
  Company Number: US-ALVOGEN-2022088752

PATIENT
  Age: 60 Year
  Sex: Female

DRUGS (1)
  1. NITROFURANTOIN [Suspect]
     Active Substance: NITROFURANTOIN
     Indication: Urinary tract infection

REACTIONS (5)
  - Neuropathy peripheral [Recovering/Resolving]
  - Dysphagia [Unknown]
  - Orthopnoea [Unknown]
  - Weight decreased [Unknown]
  - Vasculitis [Recovering/Resolving]
